FAERS Safety Report 24966146 (Version 1)
Quarter: 2025Q1

REPORT INFORMATION
  Report Type: Report from Study
  Country: US (occurrence: US)
  Receive Date: 20250213
  Receipt Date: 20250213
  Transmission Date: 20250409
  Serious: Yes (Hospitalization)
  Sender: BAYER HEALTHCARE PHARMACEUTICALS INC.
  Company Number: US-BAYER-2025A018026

PATIENT
  Sex: Male

DRUGS (4)
  1. ADEMPAS [Suspect]
     Active Substance: RIOCIGUAT
     Indication: Pulmonary arterial hypertension
     Dosage: 2.5 MG, TID
     Route: 048
     Dates: start: 202202
  2. NITRO-DUR [Suspect]
     Active Substance: NITROGLYCERIN
     Dates: start: 202501
  3. OPSUMIT [Concomitant]
     Active Substance: MACITENTAN
  4. WINREVAIR [Concomitant]
     Active Substance: SOTATERCEPT-CSRK

REACTIONS (4)
  - Lower respiratory tract infection [None]
  - Cardiac disorder [None]
  - Drug interaction [None]
  - Contraindicated product administered [None]
